FAERS Safety Report 4715924-5 (Version None)
Quarter: 2005Q3

REPORT INFORMATION
  Report Type: 
  Country: None (occurrence: None)
  Receive Date: 20050718
  Receipt Date: 20050310
  Transmission Date: 20060218
  Serious: Yes (Hospitalization)
  Sender: FDA-Public Use
  Company Number: US-MERCK-0503USA02339

PATIENT
  Age: 73 Year
  Sex: Male
  Weight: 80 kg

DRUGS (3)
  1. VIOXX [Suspect]
     Indication: ARTHRITIS
     Route: 048
     Dates: start: 20010701, end: 20040901
  2. VIOXX [Suspect]
     Indication: KNEE ARTHROPLASTY
     Route: 048
     Dates: start: 20010701, end: 20040901
  3. PROTONIX [Concomitant]
     Route: 065

REACTIONS (5)
  - BACK PAIN [None]
  - EMOTIONAL DISTRESS [None]
  - HYPERKERATOSIS [None]
  - MYOCARDIAL INFARCTION [None]
  - ROTATOR CUFF REPAIR [None]
